FAERS Safety Report 11325915 (Version 1)
Quarter: 2015Q3

REPORT INFORMATION
  Report Type: Spontaneous
  Country: US (occurrence: US)
  Receive Date: 20150731
  Receipt Date: 20150731
  Transmission Date: 20151125
  Serious: Yes (Hospitalization)
  Sender: FDA-Public Use
  Company Number: US-BEH-2015052636

PATIENT
  Age: 31 Year
  Sex: Male
  Weight: 108 kg

DRUGS (1)
  1. MONONINE [Suspect]
     Active Substance: COAGULATION FACTOR IX HUMAN
     Indication: FACTOR IX DEFICIENCY

REACTIONS (2)
  - Arthralgia [Unknown]
  - Haematoma [Unknown]

NARRATIVE: CASE EVENT DATE: 20131016
